FAERS Safety Report 8434985-3 (Version None)
Quarter: 2012Q2

REPORT INFORMATION
  Report Type: 
  Country: None (occurrence: None)
  Receive Date: 20120608
  Receipt Date: 20120523
  Transmission Date: 20120825
  Serious: Yes (Hospitalization)
  Sender: FDA-Public Use
  Company Number: LTI2012A00122

PATIENT
  Age: 89 Year
  Sex: Female

DRUGS (3)
  1. LANSOPRAZOLE [Suspect]
     Indication: GASTRIC DISORDER
     Dosage: 15 MG (15 MG, 1 IN 1 D) SUBLINGUAL
     Route: 060
     Dates: start: 20120418, end: 20120502
  2. PERINDOPRIL ERBUMINE [Concomitant]
  3. DIGOXIN [Concomitant]

REACTIONS (6)
  - WOUND COMPLICATION [None]
  - PURPURA [None]
  - PURPURA NON-THROMBOCYTOPENIC [None]
  - SKIN DISORDER [None]
  - SKIN ULCER [None]
  - PETECHIAE [None]
